FAERS Safety Report 8849901 (Version 2)
Quarter: 2014Q3

REPORT INFORMATION
  Report Type: Report from Study
  Country: US (occurrence: US)
  Receive Date: 20121019
  Receipt Date: 20140821
  Transmission Date: 20150326
  Serious: Yes (Death, Hospitalization, Other)
  Sender: FDA-Public Use
  Company Number: US-ROCHE-1136969

PATIENT
  Sex: Male

DRUGS (6)
  1. GEMCITABINE [Concomitant]
     Active Substance: GEMCITABINE\GEMCITABINE HYDROCHLORIDE
  2. CISPLATIN. [Concomitant]
     Active Substance: CISPLATIN
  3. XELODA [Suspect]
     Active Substance: CAPECITABINE
     Indication: PRODUCT USED FOR UNKNOWN INDICATION
     Dosage: 2 TABLETS OF 500 MG AND 2 TABLETS OF 150 MG
     Route: 065
     Dates: start: 19990824
  4. OXALIPLATIN. [Concomitant]
     Active Substance: OXALIPLATIN
  5. EPIRUBICIN [Concomitant]
     Active Substance: EPIRUBICIN
  6. ATIVAN [Concomitant]
     Active Substance: LORAZEPAM
     Route: 042

REACTIONS (11)
  - Abdominal pain [Unknown]
  - Convulsion [Unknown]
  - Hypotension [Unknown]
  - Azotaemia [Unknown]
  - Hepatorenal failure [Fatal]
  - Metastases to gastrointestinal tract [Unknown]
  - Hypoxia [Unknown]
  - Diarrhoea [Recovering/Resolving]
  - Gastric cancer [Fatal]
  - Encephalopathy [Unknown]
  - Nausea [Unknown]
